FAERS Safety Report 6241453-6 (Version None)
Quarter: 2009Q2

REPORT INFORMATION
  Report Type: 
  Country: None (occurrence: None)
  Receive Date: 20090619
  Receipt Date: 20090619
  Transmission Date: 20091009
  Serious: No
  Sender: FDA-Public Use
  Company Number: None

PATIENT
  Age: 45 Year
  Sex: Female
  Weight: 77.1115 kg

DRUGS (1)
  1. ZICAM COLD REMEDY GEL SWABS 2X [Suspect]
     Indication: NASOPHARYNGITIS
     Dosage: 11 USES DAILY
     Dates: start: 20080202, end: 20080302

REACTIONS (2)
  - ANOSMIA [None]
  - APPLICATION SITE HAEMATOMA [None]
